FAERS Safety Report 15472071 (Version 1)
Quarter: 2018Q4

REPORT INFORMATION
  Report Type: Report from Study
  Country: ES (occurrence: ES)
  Receive Date: 20181008
  Receipt Date: 20181008
  Transmission Date: 20190205
  Serious: Yes (Death, Hospitalization)
  Sender: FDA-Public Use
  Company Number: ES-IPSEN BIOPHARMACEUTICALS, INC.-2018-13972

PATIENT
  Sex: Male
  Weight: 71 kg

DRUGS (1)
  1. DECAPEPTYL SEMESTRAL 22.5 MG [Suspect]
     Active Substance: TRIPTORELIN PAMOATE
     Indication: PROSTATE CANCER
     Dosage: 22.5 MG
     Route: 030
     Dates: start: 20160512, end: 20161110

REACTIONS (1)
  - Hepatic failure [Fatal]
